FAERS Safety Report 20904334 (Version 4)
Quarter: 2022Q4

REPORT INFORMATION
  Report Type: Report from Study
  Country: CA (occurrence: CA)
  Receive Date: 20220602
  Receipt Date: 20221101
  Transmission Date: 20230113
  Serious: Yes (Other)
  Sender: FDA-Public Use
  Company Number: CA-BAUSCH-BL-2021-034883

PATIENT
  Age: 25 Year
  Sex: Female
  Weight: 73.094 kg

DRUGS (5)
  1. SILIQ [Suspect]
     Active Substance: BRODALUMAB
     Indication: Psoriasis
     Dosage: 210MG/ 1.5 ML, INDUCTION WEEK 0, 1, 2
     Route: 058
     Dates: start: 20211013, end: 202110
  2. SILIQ [Suspect]
     Active Substance: BRODALUMAB
     Dosage: 210MG/ 1.5 ML, Q 2 WEEKS
     Route: 058
     Dates: start: 2021
  3. SILIQ [Suspect]
     Active Substance: BRODALUMAB
     Dosage: 210MG/ 1.5 ML, Q 2 WEEKS
     Route: 058
     Dates: start: 2022, end: 202205
  4. SILIQ [Suspect]
     Active Substance: BRODALUMAB
     Dosage: 210MG/ 1.5 ML, WEEK 0, 1 (21/JUN/2022, 28/JUN/2022)
     Route: 058
     Dates: start: 20220621
  5. SILIQ [Suspect]
     Active Substance: BRODALUMAB
     Dosage: 210MG/ 1.5 ML, Q 2 WEEKS
     Route: 058
     Dates: start: 2022

REACTIONS (11)
  - Arthropathy [Unknown]
  - Surgery [Unknown]
  - Hypothyroidism [Unknown]
  - Coeliac disease [Unknown]
  - Insomnia [Unknown]
  - Tremor [Unknown]
  - Sciatica [Not Recovered/Not Resolved]
  - Illness [Unknown]
  - Cough [Unknown]
  - Product dose omission issue [Unknown]
  - Intentional product use issue [Unknown]

NARRATIVE: CASE EVENT DATE: 20210101
